FAERS Safety Report 6291167-1 (Version None)
Quarter: 2009Q3

REPORT INFORMATION
  Report Type: 
  Country: None (occurrence: None)
  Receive Date: 20090730
  Receipt Date: 20090723
  Transmission Date: 20100115
  Serious: Yes (Life-Threatening, Hospitalization)
  Sender: FDA-Public Use
  Company Number: B0585432A

PATIENT
  Sex: Male

DRUGS (4)
  1. RETROVIR [Suspect]
     Indication: ANTIVIRAL PROPHYLAXIS
     Dosage: 6MGK TWICE PER DAY
     Route: 042
     Dates: start: 20090331, end: 20090407
  2. RETROVIR [Suspect]
     Dates: start: 20090331, end: 20090331
  3. COMBIVIR [Suspect]
  4. PROTEASE INHIBITOR [Concomitant]

REACTIONS (9)
  - ANAEMIA [None]
  - DRUG EXPOSURE DURING PREGNANCY [None]
  - HYDROPS FOETALIS [None]
  - ILEUS [None]
  - INTESTINAL OBSTRUCTION [None]
  - NECROTISING ENTEROCOLITIS NEONATAL [None]
  - PREMATURE BABY [None]
  - RESPIRATORY DISTRESS [None]
  - SHOCK [None]
